FAERS Safety Report 4717289-1 (Version None)
Quarter: 2005Q3

REPORT INFORMATION
  Report Type: 
  Country: None (occurrence: None)
  Receive Date: 20050715
  Receipt Date: 20050706
  Transmission Date: 20060218
  Serious: Yes (Other)
  Sender: FDA-Public Use
  Company Number: 2005053251

PATIENT
  Age: 54 Year
  Sex: Male

DRUGS (3)
  1. LIPITOR [Suspect]
     Indication: HYPERCHOLESTEROLAEMIA
     Dosage: 5 MG (1 IN 1 D), ORAL
     Route: 048
     Dates: start: 20040527, end: 20050224
  2. ETHANOL (ETHANOL) [Suspect]
     Indication: ILL-DEFINED DISORDER
     Dates: end: 20050205
  3. AMLODIPINE BESILATE (AMLODIPINE) [Concomitant]

REACTIONS (7)
  - ALANINE AMINOTRANSFERASE INCREASED [None]
  - ASPARTATE AMINOTRANSFERASE INCREASED [None]
  - GAMMA-GLUTAMYLTRANSFERASE INCREASED [None]
  - HIGH DENSITY LIPOPROTEIN DECREASED [None]
  - LIVER DISORDER [None]
  - MALAISE [None]
  - SOMNOLENCE [None]
